FAERS Safety Report 17888598 (Version 1)
Quarter: 2020Q2

REPORT INFORMATION
  Report Type: Spontaneous
  Country: CA (occurrence: CA)
  Receive Date: 20200612
  Receipt Date: 20200612
  Transmission Date: 20200714
  Serious: Yes (Death)
  Sender: FDA-Public Use
  Company Number: CA-ROCHE-2614760

PATIENT
  Age: 74 Year
  Sex: Male
  Weight: 130 kg

DRUGS (5)
  1. GABAPENTIN. [Suspect]
     Active Substance: GABAPENTIN
     Indication: PRODUCT USED FOR UNKNOWN INDICATION
     Route: 065
  2. OXYGEN. [Concomitant]
     Active Substance: OXYGEN
  3. ESBRIET [Suspect]
     Active Substance: PIRFENIDONE
     Indication: IDIOPATHIC PULMONARY FIBROSIS
     Route: 048
  4. RAMIPRIL. [Concomitant]
     Active Substance: RAMIPRIL
  5. OMEPRAZOLE. [Concomitant]
     Active Substance: OMEPRAZOLE

REACTIONS (13)
  - Weight decreased [Fatal]
  - Diarrhoea [Fatal]
  - Dizziness [Fatal]
  - Nausea [Fatal]
  - Muscle twitching [Fatal]
  - Rash [Fatal]
  - Decreased appetite [Fatal]
  - Pulmonary function test decreased [Fatal]
  - Vomiting [Fatal]
  - Breast mass [Fatal]
  - Insomnia [Fatal]
  - Pain in extremity [Fatal]
  - Psychomotor hyperactivity [Fatal]
